FAERS Safety Report 4590951-X (Version None)
Quarter: 2005Q1

REPORT INFORMATION
  Report Type: 
  Country: None (occurrence: None)
  Receive Date: 20050217
  Receipt Date: 20050211
  Transmission Date: 20050727
  Serious: Yes (Other)
  Sender: FDA-Public Use
  Company Number: S05-USA-00078-01

PATIENT
  Age: 8 Year
  Sex: Male

DRUGS (1)
  1. LEXAPRO [Suspect]
     Indication: MAJOR DEPRESSION
     Dosage: 10 MG QD PO
     Route: 048
     Dates: start: 20041117, end: 20041228

REACTIONS (2)
  - HALLUCINATION [None]
  - SUICIDAL IDEATION [None]
